FAERS Safety Report 6103398-1 (Version None)
Quarter: 2009Q1

REPORT INFORMATION
  Report Type: 
  Country: None (occurrence: None)
  Receive Date: 20090302
  Receipt Date: 20090217
  Transmission Date: 20090719
  Serious: Yes (Hospitalization)
  Sender: FDA-Public Use
  Company Number: DSU-2008-01768

PATIENT
  Sex: Female
  Weight: 97.5234 kg

DRUGS (5)
  1. EVOXAC             (CEVIMELINE HYDROCHLORIDE) (30 MILLIGRAM, CAPSULE) [Suspect]
     Indication: DRY MOUTH
     Dosage: 90 MG (30 MG, TID), PER ORAL; 60 MG (30 MG, BID), PER ORAL
     Route: 048
     Dates: start: 20030101, end: 20081014
  2. EVOXAC             (CEVIMELINE HYDROCHLORIDE) (30 MILLIGRAM, CAPSULE) [Suspect]
     Indication: DRY MOUTH
     Dosage: 90 MG (30 MG, TID), PER ORAL; 60 MG (30 MG, BID), PER ORAL
     Route: 048
     Dates: start: 20081101
  3. LYRICA [Suspect]
     Indication: NEUROPATHY PERIPHERAL
     Dosage: 300 MG  (150 MG, BID)
     Dates: start: 20070116
  4. LYRICA [Suspect]
     Indication: PAIN
     Dosage: 300 MG  (150 MG, BID)
     Dates: start: 20070116
  5. MULTI-VITAMINS [Concomitant]

REACTIONS (15)
  - BLOOD CHOLESTEROL INCREASED [None]
  - BONE PAIN [None]
  - CUSHINGOID [None]
  - DRY EYE [None]
  - DRY THROAT [None]
  - EAR PAIN [None]
  - ECONOMIC PROBLEM [None]
  - HIGH DENSITY LIPOPROTEIN DECREASED [None]
  - HYPERLIPIDAEMIA [None]
  - ILL-DEFINED DISORDER [None]
  - JOINT SWELLING [None]
  - LIP DRY [None]
  - MALAISE [None]
  - NECK PAIN [None]
  - NEUROPATHY PERIPHERAL [None]
